FAERS Safety Report 9079139 (Version 1)
Quarter: 2013Q1

REPORT INFORMATION
  Report Type: Spontaneous
  Country: JP (occurrence: JP)
  Receive Date: 20130130
  Receipt Date: 20130130
  Transmission Date: 20140127
  Serious: Yes (Other)
  Sender: FDA-Public Use
  Company Number: JP-ROCHE-1185602

PATIENT
  Age: 8 Year
  Sex: Male
  Weight: 25.3 kg

DRUGS (4)
  1. PEGASYS [Suspect]
     Indication: CHRONIC HEPATITIS C
     Route: 058
     Dates: start: 20080329, end: 20080422
  2. PEGASYS [Suspect]
     Indication: CHRONIC HEPATITIS C
     Route: 058
     Dates: start: 20080501, end: 20090319
  3. CALONAL [Concomitant]
     Indication: PYREXIA
     Dosage: A DOSE
     Route: 048
     Dates: start: 20080329, end: 20080330
  4. CALONAL [Concomitant]
     Indication: HEADACHE

REACTIONS (4)
  - Failure to thrive [Recovering/Resolving]
  - Pyrexia [Recovering/Resolving]
  - Headache [Recovering/Resolving]
  - Alopecia [Recovered/Resolved]
